FAERS Safety Report 19355510 (Version 3)
Quarter: 2025Q2

REPORT INFORMATION
  Report Type: Spontaneous
  Country: US (occurrence: US)
  Receive Date: 20210531
  Receipt Date: 20250530
  Transmission Date: 20250716
  Serious: Yes (Death, Other)
  Sender: PURDUE
  Company Number: US-PURDUE-USA-2020-0184696

PATIENT
  Sex: Female

DRUGS (2)
  1. OXYCODONE HYDROCHLORIDE [Suspect]
     Active Substance: OXYCODONE HYDROCHLORIDE
     Indication: Product used for unknown indication
     Route: 048
  2. OXYCODONE HYDROCHLORIDE [Suspect]
     Active Substance: OXYCODONE HYDROCHLORIDE
     Dosage: 2 TABLET, QID (2 PILLS 4XS A DAY)
     Route: 048

REACTIONS (8)
  - Overdose [Fatal]
  - Tooth loss [Unknown]
  - Loss of consciousness [Unknown]
  - Drug dependence [Unknown]
  - Joint injury [Unknown]
  - Limb injury [Unknown]
  - Headache [Unknown]
  - Hypersomnia [Unknown]
